FAERS Safety Report 21003201 (Version 1)
Quarter: 2022Q2

REPORT INFORMATION
  Report Type: Spontaneous
  Country: US (occurrence: None)
  Receive Date: 20220623
  Receipt Date: 20220623
  Transmission Date: 20220721
  Serious: No
  Sender: FDA-Public Use
  Company Number: None

PATIENT
  Age: 66 Year
  Sex: Female
  Weight: 58.5 kg

DRUGS (2)
  1. BEBTELOVIMAB [Suspect]
     Active Substance: BEBTELOVIMAB
     Indication: COVID-19
     Route: 042
     Dates: start: 20220623
  2. CLIMARA [Concomitant]
     Active Substance: ESTRADIOL

REACTIONS (9)
  - Dyspnoea [None]
  - Headache [None]
  - Tinnitus [None]
  - Presyncope [None]
  - Flushing [None]
  - Back pain [None]
  - Chills [None]
  - Confusional state [None]
  - Nausea [None]

NARRATIVE: CASE EVENT DATE: 20220623
